APPROVED DRUG PRODUCT: LISDEXAMFETAMINE DIMESYLATE
Active Ingredient: LISDEXAMFETAMINE DIMESYLATE
Strength: 60MG
Dosage Form/Route: TABLET, CHEWABLE;ORAL
Application: A219258 | Product #006 | TE Code: AB
Applicant: GRANULES PHARMACEUTICALS INC
Approved: Dec 16, 2024 | RLD: No | RS: No | Type: RX